FAERS Safety Report 9766895 (Version 1)
Quarter: 2013Q4

REPORT INFORMATION
  Report Type: Spontaneous
  Country: US (occurrence: US)
  Receive Date: 20131217
  Receipt Date: 20131217
  Transmission Date: 20140711
  Serious: No
  Sender: FDA-Public Use
  Company Number: US-GLAXOSMITHKLINE-A1034287A

PATIENT
  Age: 49 Year
  Sex: Male
  Weight: 82.3 kg

DRUGS (7)
  1. VOTRIENT [Suspect]
     Indication: PRODUCT USED FOR UNKNOWN INDICATION
     Dosage: 800MG PER DAY
     Route: 048
  2. PROCHLORPERAZINE [Concomitant]
  3. LORATADINE [Concomitant]
  4. PRILOSEC [Concomitant]
  5. HYDROCHLOROTHIAZIDE + LOSARTAN [Concomitant]
  6. TRAZODONE [Concomitant]
  7. LORTAB [Concomitant]

REACTIONS (7)
  - Hepatic enzyme increased [Unknown]
  - Fatigue [Unknown]
  - Somnolence [Unknown]
  - Lethargy [Unknown]
  - Nausea [Unknown]
  - Diarrhoea [Unknown]
  - Hair colour changes [Unknown]
